FAERS Safety Report 7453342-X (Version None)
Quarter: 2011Q2

REPORT INFORMATION
  Report Type: 
  Country: None (occurrence: None)
  Receive Date: 20110502
  Receipt Date: 20110419
  Transmission Date: 20111010
  Serious: Yes (Other)
  Sender: FDA-Public Use
  Company Number: PHHY2011AT06749

PATIENT
  Sex: Female
  Weight: 68 kg

DRUGS (1)
  1. TASIGNA [Suspect]
     Dosage: 800 MG DAILY
     Route: 048
     Dates: start: 20100301

REACTIONS (6)
  - ANGIOPATHY [None]
  - VERTIGO [None]
  - VISUAL ACUITY TESTS ABNORMAL [None]
  - CEREBRAL DISORDER [None]
  - HEADACHE [None]
  - BLOOD GLUCOSE INCREASED [None]
